FAERS Safety Report 26176469 (Version 1)
Quarter: 2025Q4

REPORT INFORMATION
  Report Type: Spontaneous
  Country: GB (occurrence: GB)
  Receive Date: 20251218
  Receipt Date: 20251218
  Transmission Date: 20260118
  Serious: Yes (Disabling, Other)
  Sender: ELI LILLY AND COMPANY
  Company Number: None

PATIENT
  Age: 54 Year
  Sex: Male
  Weight: 102 kg

DRUGS (4)
  1. MOUNJARO [Suspect]
     Active Substance: TIRZEPATIDE
     Indication: Pancreatic steatosis
     Dosage: 10 MG, UNKNOWN
     Route: 065
     Dates: start: 20250423
  2. MOUNJARO [Suspect]
     Active Substance: TIRZEPATIDE
     Indication: Pancreatic steatosis
     Dosage: 10 MG, UNKNOWN
     Route: 065
     Dates: start: 20250423
  3. MOUNJARO [Suspect]
     Active Substance: TIRZEPATIDE
     Indication: Weight control
  4. MOUNJARO [Suspect]
     Active Substance: TIRZEPATIDE
     Indication: Weight control

REACTIONS (2)
  - Pancreatic disorder [Recovered/Resolved with Sequelae]
  - Medication error [Unknown]

NARRATIVE: CASE EVENT DATE: 20250423
